FAERS Safety Report 7798104-9 (Version None)
Quarter: 2011Q4

REPORT INFORMATION
  Report Type: 
  Country: None (occurrence: None)
  Receive Date: 20111005
  Receipt Date: 20110929
  Transmission Date: 20120403
  Serious: Yes (Other)
  Sender: FDA-Public Use
  Company Number: US-ABBOTT-11P-163-0860211-00

PATIENT
  Sex: Male
  Weight: 89.438 kg

DRUGS (4)
  1. SIMVASTATIN [Concomitant]
     Indication: BLOOD CHOLESTEROL
     Dates: start: 20080101
  2. ANDROGEL [Suspect]
     Indication: BLOOD TESTOSTERONE DECREASED
     Dosage: TWO PUMPS PER DAY
     Dates: start: 20100901
  3. NORCO [Concomitant]
     Indication: BACK PAIN
  4. PROZAC [Concomitant]
     Indication: DEPRESSION

REACTIONS (8)
  - HAEMORRHAGIC CYST [None]
  - HAEMATOMA [None]
  - BLOOD TRIGLYCERIDES INCREASED [None]
  - THYROID CANCER [None]
  - NOCTURIA [None]
  - MICTURITION URGENCY [None]
  - PROSTATIC SPECIFIC ANTIGEN INCREASED [None]
  - BLEEDING VARICOSE VEIN [None]
